FAERS Safety Report 8585848-4 (Version None)
Quarter: 2012Q3

REPORT INFORMATION
  Report Type: 
  Country: None (occurrence: None)
  Receive Date: 20120802
  Receipt Date: 20120802
  Transmission Date: 20120928
  Serious: Yes (Other)
  Sender: FDA-Public Use
  Company Number: None

PATIENT
  Age: 49 Year
  Sex: Female
  Weight: 95.2554 kg

DRUGS (2)
  1. TRETINOIN [Suspect]
     Indication: ACNE
     Dosage: PEASIZE EVERY NIGHT TOP
     Route: 061
     Dates: start: 20120714, end: 20120729
  2. TRETINOIN [Suspect]
     Indication: ACNE
     Dosage: PEASIZE EVERY NIGHT TOP
     Route: 061
     Dates: start: 20120520, end: 20120525

REACTIONS (5)
  - DIZZINESS [None]
  - HEADACHE [None]
  - HYPERHIDROSIS [None]
  - CHEST PAIN [None]
  - DYSPNOEA [None]
